FAERS Safety Report 18605848 (Version 2)
Quarter: 2021Q1

REPORT INFORMATION
  Report Type: Report from Study
  Country: ES (occurrence: ES)
  Receive Date: 20201211
  Receipt Date: 20210122
  Transmission Date: 20210419
  Serious: Yes (Hospitalization, Other)
  Sender: FDA-Public Use
  Company Number: ES-EMD SERONO-9204395

PATIENT
  Age: 56 Year
  Sex: Female

DRUGS (1)
  1. REBIF [Suspect]
     Active Substance: INTERFERON BETA-1A
     Indication: MULTIPLE SCLEROSIS
     Dosage: DOSE: 44 MG (MILLIGRAM)
     Route: 058
     Dates: start: 20120731, end: 20200914

REACTIONS (10)
  - Pulmonary embolism [Unknown]
  - COVID-19 [Unknown]
  - Dysgraphia [Not Recovered/Not Resolved]
  - Multiple sclerosis [Not Recovered/Not Resolved]
  - Liver function test abnormal [Unknown]
  - Mobility decreased [Not Recovered/Not Resolved]
  - Internal haemorrhage [Unknown]
  - Asthenia [Not Recovered/Not Resolved]
  - Toxicity to various agents [Unknown]
  - Gait disturbance [Not Recovered/Not Resolved]

NARRATIVE: CASE EVENT DATE: 2020
